FAERS Safety Report 21632675 (Version 1)
Quarter: 2022Q4

REPORT INFORMATION
  Report Type: Spontaneous
  Country: SY (occurrence: SY)
  Receive Date: 20221123
  Receipt Date: 20221123
  Transmission Date: 20230113
  Serious: Yes (Other)
  Sender: FDA-Public Use
  Company Number: SY-SUN PHARMACEUTICAL INDUSTRIES LTD-2022RR-365094

PATIENT
  Age: 31 Year
  Sex: Female

DRUGS (4)
  1. ACETAMINOPHEN [Suspect]
     Active Substance: ACETAMINOPHEN
     Indication: Product used for unknown indication
     Dosage: UNK
     Route: 065
  2. DOXORUBICIN [Suspect]
     Active Substance: DOXORUBICIN
     Indication: Invasive lobular breast carcinoma
     Dosage: 100 MG; 2 CYCLES
     Route: 065
  3. PREDNISONE [Suspect]
     Active Substance: PREDNISONE
     Indication: Crohn^s disease
     Dosage: 20 MILLIGRAM, DAILY
     Route: 048
  4. CYCLOPHOSPHAMIDE [Suspect]
     Active Substance: CYCLOPHOSPHAMIDE
     Indication: Invasive lobular breast carcinoma
     Dosage: 1000 MG; 2 CYCLES
     Route: 065

REACTIONS (3)
  - Exposure during pregnancy [Unknown]
  - Weight increased [Unknown]
  - Therapy cessation [Unknown]
